FAERS Safety Report 5188779-5 (Version None)
Quarter: 2006Q4

REPORT INFORMATION
  Report Type: 
  Country: None (occurrence: None)
  Receive Date: 20061215
  Receipt Date: 20061212
  Transmission Date: 20070319
  Serious: Yes (Death)
  Sender: FDA-Public Use
  Company Number: E2090-00128-SPO-US

PATIENT
  Age: 47 Year
  Sex: Male

DRUGS (2)
  1. ZONEGRAN [Suspect]
     Indication: CONVULSION
     Dosage: 100 MG, 1 IN 1 D, ORAL
     Route: 048
     Dates: start: 20060101, end: 20061022
  2. KEPPRA [Suspect]
     Dosage: SEE IMAGE
     Route: 048
     Dates: end: 20061001

REACTIONS (4)
  - ABASIA [None]
  - MYOCARDIAL INFARCTION [None]
  - RASH [None]
  - WEIGHT DECREASED [None]
